FAERS Safety Report 8953281 (Version 1)
Quarter: 2012Q4

REPORT INFORMATION
  Report Type: 
  Country: FI (occurrence: FI)
  Receive Date: 20121206
  Receipt Date: 20121206
  Transmission Date: 20130627
  Serious: Yes (Other)
  Sender: FDA-Public Use
  Company Number: FI-JNJFOC-20121113219

PATIENT
  Sex: Male

DRUGS (5)
  1. SERENASE [Suspect]
     Indication: ANXIETY
     Route: 048
  2. CITALOPRAM [Interacting]
     Indication: DEPRESSION
     Route: 048
  3. LORAZEPAM [Interacting]
     Indication: ANXIETY
     Route: 048
  4. IMOVANE [Interacting]
     Indication: INSOMNIA
     Route: 048
  5. PARA-TABS [Interacting]
     Indication: PRODUCT USED FOR UNKNOWN INDICATION
     Route: 048

REACTIONS (3)
  - Head injury [Unknown]
  - Fall [Unknown]
  - Drug interaction [Unknown]
